FAERS Safety Report 8905336 (Version 1)
Quarter: 2012Q4

REPORT INFORMATION
  Report Type: Report from Study
  Country: US (occurrence: US)
  Receive Date: 20121109
  Receipt Date: 20121109
  Transmission Date: 20130627
  Serious: Yes (Other)
  Sender: FDA-Public Use
  Company Number: US-ABBOTT-12P-163-1003021-00

PATIENT
  Age: 72 Year
  Sex: Female

DRUGS (46)
  1. HUMIRA [Suspect]
     Indication: RHEUMATOID ARTHRITIS
     Dates: start: 2009
  2. FOLIC ACID [Concomitant]
     Indication: PRODUCT USED FOR UNKNOWN INDICATION
  3. FLONASE [Concomitant]
     Indication: PRODUCT USED FOR UNKNOWN INDICATION
  4. COMBIVENT [Concomitant]
     Indication: SEASONAL ALLERGY
     Dosage: 2 puffs per day
  5. PLAQUENIL [Concomitant]
     Indication: PRODUCT USED FOR UNKNOWN INDICATION
  6. LISINOPRIL [Concomitant]
     Indication: HYPERTENSION
  7. METFORMIN [Concomitant]
     Indication: DIABETES MELLITUS
  8. METHOTREXATE [Concomitant]
     Indication: PRODUCT USED FOR UNKNOWN INDICATION
     Dosage: 2.5 mg (8) every Wednesday
  9. SINGULAIR [Concomitant]
     Indication: PRODUCT USED FOR UNKNOWN INDICATION
  10. MULTIVITAMINS [Concomitant]
  11. NITROGLYCERIN [Concomitant]
     Indication: HYPERTENSION
  12. NITROGLYCERIN [Concomitant]
     Indication: CARDIAC DISORDER
  13. NITROSTATIN TRIAMCINOLONE [Concomitant]
     Indication: HEAT RASH
  14. OMEPRAZOLE [Concomitant]
     Indication: GASTRIC DISORDER
  15. DOCUSATE [Concomitant]
     Indication: PRODUCT USED FOR UNKNOWN INDICATION
     Dosage: 2 tablets daily
  16. VALIUM [Concomitant]
     Indication: ANXIOLYTIC THERAPY
     Dosage: Twice daily as needed
  17. VALIUM [Concomitant]
     Indication: ABDOMINAL PAIN
  18. VALIUM [Concomitant]
     Indication: PROPHYLAXIS
  19. HIBICLENS [Concomitant]
     Indication: PRODUCT USED FOR UNKNOWN INDICATION
     Dosage: Special soap, used while bathing or anything like that
  20. OSCAL 500 + VITAMIN D [Concomitant]
     Indication: PRODUCT USED FOR UNKNOWN INDICATION
  21. LIPITOR [Concomitant]
     Indication: PRODUCT USED FOR UNKNOWN INDICATION
  22. ASPIRIN [Concomitant]
     Indication: PRODUCT USED FOR UNKNOWN INDICATION
  23. PROVENTIL INHALER [Concomitant]
     Indication: SEASONAL ALLERGY
  24. PROVENTIL INHALER [Concomitant]
     Indication: SEASONAL ALLERGY
  25. VERAPAMIL [Concomitant]
     Indication: HYPERTENSION
  26. KENALOG [Concomitant]
     Indication: HYPERHIDROSIS
  27. KENALOG [Concomitant]
     Indication: RASH
  28. KENALOG [Concomitant]
     Indication: HAEMORRHAGE
  29. SENOKOT [Concomitant]
     Indication: LAXATIVE SUPPORTIVE CARE
  30. PREDNISONE [Concomitant]
     Indication: DYSPNOEA
  31. PREDNISONE [Concomitant]
     Indication: PSORIASIS
  32. POTASSIUM [Concomitant]
     Indication: PRODUCT USED FOR UNKNOWN INDICATION
  33. UNKNOWN VITAMIN [Concomitant]
     Indication: EYE DISORDER
  34. LEVOXYL [Concomitant]
     Indication: PRODUCT USED FOR UNKNOWN INDICATION
     Dosage: 150 mg daily
  35. OXYGEN [Concomitant]
     Indication: PRODUCT USED FOR UNKNOWN INDICATION
  36. SYSTANE [Concomitant]
     Indication: MACULAR DEGENERATION
     Dosage: Daily as needed
  37. UNKNOWN MEDICATION [Concomitant]
     Indication: RHEUMATOID ARTHRITIS
  38. MUCINEX [Concomitant]
     Indication: BRONCHITIS
  39. FENTANYL [Concomitant]
     Indication: PAIN IN EXTREMITY
     Dosage: Patch, changed every three days
  40. FENTANYL [Concomitant]
     Indication: BACK PAIN
  41. ANTIBIOTICS [Concomitant]
     Indication: PRODUCT USED FOR UNKNOWN INDICATION
  42. PYRIDIUM [Concomitant]
     Indication: CYSTITIS
  43. POLYETHYLENE GLYCOL [Concomitant]
     Indication: PRODUCT USED FOR UNKNOWN INDICATION
     Dosage: Every morning
  44. MECLIZINE [Concomitant]
     Indication: DIZZINESS
     Dosage: 3 in 1 D as needed
  45. FLOVENT [Concomitant]
     Indication: SEASONAL ALLERGY
  46. OXYCONTIN [Concomitant]
     Indication: PRODUCT USED FOR UNKNOWN INDICATION

REACTIONS (20)
  - Dysphagia [Unknown]
  - Upper limb fracture [Unknown]
  - Upper limb fracture [Unknown]
  - Dyspnoea [Unknown]
  - Fall [Unknown]
  - Rheumatoid arthritis [Unknown]
  - Oedema peripheral [Unknown]
  - Oedema peripheral [Unknown]
  - Swelling face [Unknown]
  - Skin discolouration [Unknown]
  - Macular degeneration [Unknown]
  - Bronchitis [Unknown]
  - Pain [Unknown]
  - Nausea [Unknown]
  - Dizziness [Unknown]
  - Vomiting [Unknown]
  - Seasonal allergy [Unknown]
  - Cystitis [Unknown]
  - Nausea [Unknown]
  - Fall [Unknown]
